FAERS Safety Report 16967176 (Version 1)
Quarter: 2019Q4

REPORT INFORMATION
  Report Type: Spontaneous
  Country: US (occurrence: US)
  Receive Date: 20191028
  Receipt Date: 20191028
  Transmission Date: 20200122
  Serious: Yes (Other)
  Sender: FDA-Public Use
  Company Number: US-PERRIGO-19US012463

PATIENT
  Age: 11 Year
  Sex: Female
  Weight: 34.01 kg

DRUGS (2)
  1. LANSOPRAZOLE. [Suspect]
     Active Substance: LANSOPRAZOLE
     Dosage: 15 MG, BID
     Route: 048
     Dates: start: 20191011, end: 20191015
  2. LANSOPRAZOLE. [Suspect]
     Active Substance: LANSOPRAZOLE
     Indication: DYSPEPSIA
     Dosage: 15 MG, BID
     Route: 048
     Dates: start: 20191002, end: 20191008

REACTIONS (8)
  - Anaphylactic shock [Recovered/Resolved]
  - Discomfort [Recovered/Resolved]
  - Swelling [Recovered/Resolved]
  - Limb discomfort [Recovering/Resolving]
  - Dyspnoea [Recovered/Resolved]
  - Vomiting [Recovered/Resolved]
  - Pruritus [Recovering/Resolving]
  - Product administered to patient of inappropriate age [Recovered/Resolved]

NARRATIVE: CASE EVENT DATE: 20191002
